FAERS Safety Report 19719999 (Version 1)
Quarter: 2021Q3

REPORT INFORMATION
  Report Type: Other
  Country: US (occurrence: US)
  Receive Date: 20210819
  Receipt Date: 20210819
  Transmission Date: 20211014
  Serious: Yes (Other)
  Sender: FDA-Public Use
  Company Number: US-APOTEX-2021AP036464

PATIENT
  Age: 57 Year
  Sex: Female

DRUGS (3)
  1. RANITIDINE TABLETS [Suspect]
     Active Substance: RANITIDINE HYDROCHLORIDE
     Indication: GASTROOESOPHAGEAL REFLUX DISEASE
     Dosage: OTHER (150MG AT BED TIME (2 TABS AT NIGHT))
     Route: 065
     Dates: start: 200701, end: 201908
  2. ZANTAC [Suspect]
     Active Substance: RANITIDINE HYDROCHLORIDE
     Indication: GASTROOESOPHAGEAL REFLUX DISEASE
     Dosage: OTHER (300MG AT NIGHT)
     Route: 065
     Dates: start: 200901, end: 201908
  3. RANITIDINE. [Suspect]
     Active Substance: RANITIDINE
     Indication: GASTROOESOPHAGEAL REFLUX DISEASE
     Dosage: OTHER (150MG TABS X2 AT BED TIME)
     Route: 065
     Dates: start: 200701, end: 201908

REACTIONS (1)
  - Renal cancer [Unknown]

NARRATIVE: CASE EVENT DATE: 20190101
